FAERS Safety Report 5465439-4 (Version None)
Quarter: 2007Q3

REPORT INFORMATION
  Report Type: 
  Country: None (occurrence: None)
  Receive Date: 20070920
  Receipt Date: 20070911
  Transmission Date: 20080115
  Serious: Yes (Other)
  Sender: FDA-Public Use
  Company Number: 2007-04157

PATIENT
  Age: 71 Year
  Sex: Female

DRUGS (5)
  1. HYDROXYCHLOROQUINE SULFATE [Suspect]
     Indication: RHEUMATOID ARTHRITIS
     Dosage: 400 MG, DAILY X 7 YEARS,  ORAL
     Route: 048
     Dates: start: 19990101, end: 20050101
  2. IBUPROFEN [Concomitant]
  3. ALENDRONATE SODIUM [Concomitant]
  4. CALCIUM SUPPLEMENT [Concomitant]
  5. AMLODIPINE [Concomitant]

REACTIONS (2)
  - MYELODYSPLASTIC SYNDROME [None]
  - REFRACTORY ANAEMIA [None]
